FAERS Safety Report 8212052-1 (Version None)
Quarter: 2012Q1

REPORT INFORMATION
  Report Type: 
  Country: None (occurrence: None)
  Receive Date: 20120315
  Receipt Date: 20120302
  Transmission Date: 20120608
  Serious: Yes (Other)
  Sender: FDA-Public Use
  Company Number: PHHY2012AR016102

PATIENT
  Sex: Female

DRUGS (2)
  1. ONBREZ [Suspect]
     Indication: NEUROPATHY PERIPHERAL
     Dosage: 300 UG, QD
     Dates: end: 20120101
  2. ONBREZ [Suspect]
     Indication: AGITATION

REACTIONS (4)
  - DYSPHAGIA [None]
  - DYSPHONIA [None]
  - AGITATION [None]
  - BRONCHITIS [None]
